FAERS Safety Report 22518621 (Version 2)
Quarter: 2023Q2

REPORT INFORMATION
  Report Type: Spontaneous
  Country: AR (occurrence: AR)
  Receive Date: 20230605
  Receipt Date: 20230613
  Transmission Date: 20230722
  Serious: Yes (Death, Hospitalization)
  Sender: FDA-Public Use
  Company Number: AR-BoehringerIngelheim-2023-BI-241060

PATIENT
  Age: 82 Year
  Sex: Male

DRUGS (6)
  1. ALTEPLASE [Suspect]
     Active Substance: ALTEPLASE
     Indication: Ischaemic stroke
     Dosage: TOTAL DOSE 72 MG, LYOPHILISATE FOR SUSPENSION
     Route: 065
     Dates: start: 20230522, end: 20230522
  2. ALTEPLASE [Suspect]
     Active Substance: ALTEPLASE
     Dosage: CONTINUOUS INFUSION IN ONE HOUR).TOTAL DOSE 72 MG, LYOPHILISATE FOR SUSPENSION
     Route: 065
     Dates: start: 20230522, end: 20230522
  3. ASPIRIN [Concomitant]
     Active Substance: ASPIRIN
     Indication: Product used for unknown indication
  4. CLOPIDOGREL [Concomitant]
     Active Substance: CLOPIDOGREL BISULFATE
     Indication: Product used for unknown indication
  5. ROSUVASTATIN [Concomitant]
     Active Substance: ROSUVASTATIN
     Indication: Product used for unknown indication
  6. NEBIVOLOL [Concomitant]
     Active Substance: NEBIVOLOL
     Indication: Product used for unknown indication

REACTIONS (12)
  - Vascular access site haemorrhage [Fatal]
  - Hyperhidrosis [Fatal]
  - Back pain [Fatal]
  - Mouth haemorrhage [Fatal]
  - Anisocoria [Fatal]
  - Coma [Fatal]
  - Haemorrhagic diathesis [Fatal]
  - Cerebral haematoma [Fatal]
  - Intraventricular haemorrhage [Fatal]
  - Cerebellar haematoma [Fatal]
  - Subdural haematoma [Fatal]
  - Subarachnoid haemorrhage [Fatal]

NARRATIVE: CASE EVENT DATE: 20230522
